FAERS Safety Report 25195806 (Version 3)
Quarter: 2025Q3

REPORT INFORMATION
  Report Type: Spontaneous
  Country: US (occurrence: US)
  Receive Date: 20250415
  Receipt Date: 20250826
  Transmission Date: 20251021
  Serious: No
  Sender: SANOFI AVENTIS
  Company Number: US-SA-2025SA105098

PATIENT
  Age: 69 Year
  Sex: Female

DRUGS (3)
  1. DUPIXENT [Suspect]
     Active Substance: DUPILUMAB
     Indication: Dermatitis atopic
     Route: 058
     Dates: start: 202412, end: 202412
  2. DUPIXENT [Suspect]
     Active Substance: DUPILUMAB
     Indication: Eczema
     Dosage: 300 MG, QOW
     Route: 058
  3. OTEZLA [Concomitant]
     Active Substance: APREMILAST

REACTIONS (4)
  - Stress [Unknown]
  - Diarrhoea [Unknown]
  - Eczema [Not Recovered/Not Resolved]
  - Drug ineffective [Unknown]
